FAERS Safety Report 21903595 (Version 1)
Quarter: 2023Q1

REPORT INFORMATION
  Report Type: Report from Study
  Country: CO (occurrence: CO)
  Receive Date: 20230124
  Receipt Date: 20230124
  Transmission Date: 20230418
  Serious: Yes (Life-Threatening, Other)
  Sender: FDA-Public Use
  Company Number: CO-ABBVIE-4280482

PATIENT
  Age: 43 Year
  Sex: Male
  Weight: 55 kg

DRUGS (3)
  1. ZEMPLAR [Suspect]
     Active Substance: PARICALCITOL
     Indication: Chronic kidney disease
     Route: 042
     Dates: start: 20160831, end: 20230110
  2. PRAZOSIN [Concomitant]
     Active Substance: PRAZOSIN
     Indication: Hypertension
     Route: 048
     Dates: start: 202205
  3. CLONIDINE [Concomitant]
     Active Substance: CLONIDINE
     Indication: Hypertension
     Route: 048
     Dates: start: 202205

REACTIONS (7)
  - Cardiac valve disease [Recovered/Resolved]
  - Pain [Not Recovered/Not Resolved]
  - Coma [Recovered/Resolved]
  - Pruritus [Recovering/Resolving]
  - Cardiac disorder [Not Recovered/Not Resolved]
  - Blood phosphorus abnormal [Not Recovered/Not Resolved]
  - Tachycardia [Not Recovered/Not Resolved]

NARRATIVE: CASE EVENT DATE: 20220501
